FAERS Safety Report 5878453-1 (Version None)
Quarter: 2008Q3

REPORT INFORMATION
  Report Type: 
  Country: None (occurrence: None)
  Receive Date: 20080911
  Receipt Date: 20070911
  Transmission Date: 20090109
  Serious: No
  Sender: FDA-Public Use
  Company Number: US-AMGEN-KDL242849

PATIENT
  Sex: Male

DRUGS (1)
  1. NEUPOGEN [Suspect]
     Indication: BLOOD STEM CELL HARVEST
     Dates: start: 20010101

REACTIONS (4)
  - BONE PAIN [None]
  - FEMUR FRACTURE [None]
  - LUMBAR VERTEBRAL FRACTURE [None]
  - OSTEOPENIA [None]
